FAERS Safety Report 4644281-8 (Version None)
Quarter: 2005Q2

REPORT INFORMATION
  Report Type: 
  Country: None (occurrence: None)
  Receive Date: 20050331
  Receipt Date: 20041230
  Transmission Date: 20051028
  Serious: No
  Sender: FDA-Public Use
  Company Number: 05P-163-0285085-00

PATIENT
  Age: 24 Year
  Sex: Female
  Weight: 66.6788 kg

DRUGS (4)
  1. HUMIRA [Suspect]
     Indication: CROHN'S DISEASE
     Dosage: 40 MG, 1 IN 2 WK, SUBCUTANEOUS
     Route: 058
     Dates: start: 20041001
  2. LAMOTRIGINE [Concomitant]
  3. QUETIAPINE FUMARATE [Concomitant]
  4. BEMINAL WITH C FORTIS [Concomitant]

REACTIONS (4)
  - LIVER FUNCTION TEST ABNORMAL [None]
  - NEUTROPHIL COUNT INCREASED [None]
  - PHAGOCYTOSIS [None]
  - WHITE BLOOD CELL COUNT INCREASED [None]
